FAERS Safety Report 8098160-7 (Version None)
Quarter: 2012Q1

REPORT INFORMATION
  Report Type: 
  Country: None (occurrence: None)
  Receive Date: 20120128
  Receipt Date: 20110817
  Transmission Date: 20120608
  Serious: No
  Sender: FDA-Public Use
  Company Number: US-ABBOTT-11P-163-0847672-00

PATIENT
  Sex: Female

DRUGS (4)
  1. HUMIRA [Suspect]
     Indication: ANKYLOSING SPONDYLITIS
  2. TOPICAL PATCH [Concomitant]
     Indication: PAIN
     Route: 061
  3. LEVOTHROID [Concomitant]
     Indication: HYPOTHYROIDISM
  4. CELEBREX [Concomitant]
     Indication: PRODUCT USED FOR UNKNOWN INDICATION
     Route: 048

REACTIONS (7)
  - ARTHRALGIA [None]
  - WRONG TECHNIQUE IN DRUG USAGE PROCESS [None]
  - INJECTION SITE URTICARIA [None]
  - BACK PAIN [None]
  - INCORRECT DOSE ADMINISTERED [None]
  - CONDITION AGGRAVATED [None]
  - INJECTION SITE HAEMORRHAGE [None]
